FAERS Safety Report 10501302 (Version 1)
Quarter: 2014Q4

REPORT INFORMATION
  Report Type: Spontaneous
  Country: US (occurrence: None)
  Receive Date: 20141006
  Receipt Date: 20141006
  Transmission Date: 20150528
  Serious: Yes (Disabling)
  Sender: FDA-Public Use
  Company Number: None

PATIENT
  Age: 66 Year
  Sex: Female
  Weight: 58.06 kg

DRUGS (1)
  1. BINOSTO [Suspect]
     Active Substance: ALENDRONATE SODIUM
     Indication: OSTEOPOROSIS
     Dosage: 70 MG EFFERVESCENT ONCE WEEKLY TAKEN BY MOUTH
     Route: 048
     Dates: start: 20140725, end: 20140808

REACTIONS (10)
  - Activities of daily living impaired [None]
  - Impaired work ability [None]
  - Contusion [None]
  - Asthenia [None]
  - Back pain [None]
  - Myalgia [None]
  - Arthralgia [None]
  - Quality of life decreased [None]
  - Neck pain [None]
  - Musculoskeletal stiffness [None]

NARRATIVE: CASE EVENT DATE: 20140718
